FAERS Safety Report 8136744-8 (Version None)
Quarter: 2012Q1

REPORT INFORMATION
  Report Type: 
  Country: None (occurrence: None)
  Receive Date: 20120214
  Receipt Date: 20120209
  Transmission Date: 20120608
  Serious: Yes (Other)
  Sender: FDA-Public Use
  Company Number: BR-PFIZER INC-2012036632

PATIENT
  Age: 25 Year
  Sex: Female

DRUGS (5)
  1. GEODON [Suspect]
     Indication: WEIGHT LOSS DIET
  2. GEODON [Suspect]
     Indication: ANXIETY
     Dosage: 40 MG (ONE TABLET), 2X/DAY
     Route: 048
     Dates: start: 20120201
  3. LITHIUM CARBONATE [Concomitant]
     Indication: DEPRESSION
     Dosage: 1 DF, 2X/DAY
     Dates: start: 20111101
  4. OLANZAPINE [Suspect]
     Indication: DEPRESSION
     Dosage: 10 MG (ONE TABLET), 2X/DAY
     Route: 048
     Dates: start: 20111201, end: 20120208
  5. GEODON [Suspect]
     Indication: DEPRESSION

REACTIONS (3)
  - IRRITABILITY [None]
  - PRURITUS [None]
  - HYPERSENSITIVITY [None]
